FAERS Safety Report 8012588-2 (Version None)
Quarter: 2011Q4

REPORT INFORMATION
  Report Type: 
  Country: None (occurrence: None)
  Receive Date: 20111229
  Receipt Date: 20111221
  Transmission Date: 20120403
  Serious: Yes (Hospitalization, Other)
  Sender: FDA-Public Use
  Company Number: JP-BAYER-2011-083996

PATIENT
  Age: 75 Year
  Sex: Male

DRUGS (7)
  1. NEXAVAR [Suspect]
     Indication: HEPATIC NEOPLASM MALIGNANT
     Dosage: 400 MG, QD
     Route: 048
     Dates: start: 20110906, end: 20111012
  2. URSO 250 [Concomitant]
     Indication: HEPATIC FUNCTION ABNORMAL
     Dosage: DAILY DOSE 300 MG
     Route: 048
     Dates: start: 20100801, end: 20110922
  3. AMLODIPINE [Concomitant]
     Indication: HYPERTENSION
     Dosage: DAILY DOSE 5 MG
     Route: 048
     Dates: start: 20110905
  4. DIOVAN [Concomitant]
     Indication: HYPERTENSION
     Dosage: DAILY DOSE 160 MG
     Route: 048
     Dates: start: 20110905
  5. VERAPAMIL HCL [Concomitant]
     Indication: ATRIAL FLUTTER
     Dosage: DAILY DOSE 120 MG
     Route: 048
     Dates: start: 20110816
  6. URSO 250 [Concomitant]
     Indication: DEFICIENCY OF BILE SECRETION
     Dosage: DAILY DOSE 600 MG
     Route: 048
     Dates: start: 20110101
  7. WARFARIN SODIUM [Concomitant]
     Indication: ANTIPLATELET THERAPY
     Dosage: DAILY DOSE 1.5 MG
     Route: 048
     Dates: start: 20110816

REACTIONS (6)
  - SEPTIC SHOCK [None]
  - HYPERTENSION [None]
  - BLOOD AMYLASE INCREASED [None]
  - PALMAR-PLANTAR ERYTHRODYSAESTHESIA SYNDROME [None]
  - CHOLANGITIS [None]
  - ATRIAL FLUTTER [None]
